FAERS Safety Report 26139269 (Version 1)
Quarter: 2025Q4

REPORT INFORMATION
  Report Type: Spontaneous
  Country: EU (occurrence: EU)
  Receive Date: 20251210
  Receipt Date: 20251210
  Transmission Date: 20260118
  Serious: Yes (Hospitalization)
  Sender: AMGEN
  Company Number: EU-AMGEN-ITASP2025242762

PATIENT
  Age: 2 Year
  Sex: Female

DRUGS (1)
  1. ECULIZUMAB [Suspect]
     Active Substance: ECULIZUMAB
     Indication: Seizure
     Dosage: UNK
     Route: 065

REACTIONS (4)
  - Status epilepticus [Unknown]
  - Carotid artery stenosis [Recovered/Resolved]
  - Cerebral atrophy [Unknown]
  - Off label use [Unknown]
